FAERS Safety Report 12909636 (Version 1)
Quarter: 2016Q4

REPORT INFORMATION
  Report Type: Spontaneous
  Country: US (occurrence: US)
  Receive Date: 20161104
  Receipt Date: 20161104
  Transmission Date: 20170207
  Serious: Yes (Other)
  Sender: FDA-Public Use
  Company Number: US-009507513-1610USA016481

PATIENT
  Age: 72 Year
  Sex: Male

DRUGS (1)
  1. SYLATRON [Suspect]
     Active Substance: PEGINTERFERON ALFA-2B
     Indication: MALIGNANT MELANOMA
     Dosage: UNK
     Route: 058
     Dates: start: 20160603, end: 2016

REACTIONS (6)
  - Chills [Unknown]
  - Nausea [Unknown]
  - Pyrexia [Unknown]
  - Tremor [Unknown]
  - Adverse reaction [Unknown]
  - Malignant neoplasm progression [Unknown]

NARRATIVE: CASE EVENT DATE: 2016
